FAERS Safety Report 8937122 (Version 1)
Quarter: 2012Q4

REPORT INFORMATION
  Report Type: Spontaneous
  Country: US (occurrence: None)
  Receive Date: 20121128
  Receipt Date: 20121128
  Transmission Date: 20130627
  Serious: Yes (Other)
  Sender: FDA-Public Use
  Company Number: None

PATIENT
  Age: 19 Year
  Sex: Female
  Weight: 72.58 kg

DRUGS (1)
  1. MIRENA [Suspect]
     Indication: BIRTH CONTROL
     Dates: start: 20101005, end: 20101116

REACTIONS (8)
  - Device related infection [None]
  - Urinary tract infection [None]
  - Abortion spontaneous [None]
  - Emotional disorder [None]
  - Depression [None]
  - Pregnancy with contraceptive device [None]
  - Exposure during pregnancy [None]
  - Haemorrhage [None]
